FAERS Safety Report 9188028 (Version 5)
Quarter: 2013Q4

REPORT INFORMATION
  Report Type: Report from Study
  Country: PK (occurrence: PK)
  Receive Date: 20130325
  Receipt Date: 20131106
  Transmission Date: 20140711
  Serious: Yes (Death, Hospitalization)
  Sender: FDA-Public Use
  Company Number: PK-ROCHE-1029144

PATIENT
  Age: 33 Year
  Sex: Male
  Weight: 94 kg

DRUGS (1)
  1. PEG-INTERFERON ALFA 2A [Suspect]
     Indication: CHRONIC HEPATITIS B
     Dosage: LAST DOSE BEFORE SAE 26/JUL/2010
     Route: 058
     Dates: start: 20100212

REACTIONS (3)
  - Cardio-respiratory arrest [Fatal]
  - Liver disorder [Fatal]
  - Hepatic encephalopathy [Not Recovered/Not Resolved]
